FAERS Safety Report 6544203-9 (Version None)
Quarter: 2010Q1

REPORT INFORMATION
  Report Type: 
  Country: None (occurrence: None)
  Receive Date: 20100119
  Receipt Date: 20100119
  Transmission Date: 20100710
  Serious: No
  Sender: FDA-Public Use
  Company Number: None

PATIENT
  Age: 59 Year
  Sex: Male
  Weight: 97.5234 kg

DRUGS (2)
  1. AMLODIPINE [Suspect]
     Indication: BLOOD PRESSURE
     Dosage: 5MG TWICE A DAY
     Dates: start: 20080217, end: 20080317
  2. AMLODIPINE [Suspect]
     Indication: BLOOD PRESSURE
     Dosage: 5MG TWICE A DAY
     Dates: start: 20080417, end: 20090617

REACTIONS (3)
  - BLOOD PRESSURE INCREASED [None]
  - DYSURIA [None]
  - PRODUCT SUBSTITUTION ISSUE [None]
